FAERS Safety Report 23093065 (Version 1)
Quarter: 2023Q4

REPORT INFORMATION
  Report Type: Spontaneous
  Country: US (occurrence: US)
  Receive Date: 20231021
  Receipt Date: 20231021
  Transmission Date: 20240110
  Serious: Yes (Other)
  Sender: FDA-Public Use
  Company Number: US-TEVA-2023-US-2936478

PATIENT
  Age: 44 Year

DRUGS (2)
  1. HYDROCODONE BITARTRATE AND ACETAMINOPHEN [Suspect]
     Active Substance: ACETAMINOPHEN\HYDROCODONE BITARTRATE
     Indication: Pain
     Route: 065
  2. NORCO [Suspect]
     Active Substance: ACETAMINOPHEN\HYDROCODONE BITARTRATE
     Indication: Product used for unknown indication
     Dosage: 10MG/325MG
     Route: 065

REACTIONS (9)
  - Suicidal ideation [Unknown]
  - Thrombosis [Unknown]
  - Pain [Unknown]
  - Dysstasia [Unknown]
  - Bedridden [Unknown]
  - Feeling abnormal [Unknown]
  - Cardiac pacemaker insertion [Unknown]
  - Stress [Unknown]
  - Product availability issue [Unknown]
